FAERS Safety Report 21591515 (Version 2)
Quarter: 2022Q4

REPORT INFORMATION
  Report Type: Spontaneous
  Country: US (occurrence: US)
  Receive Date: 20221114
  Receipt Date: 20221209
  Transmission Date: 20230113
  Serious: Yes (Other)
  Sender: FDA-Public Use
  Company Number: US-BAYER-2022A152963

PATIENT
  Age: 34 Year
  Sex: Female

DRUGS (1)
  1. MIRENA [Suspect]
     Active Substance: LEVONORGESTREL
     Indication: Contraception
     Dosage: 20?G/DAY
     Route: 015
     Dates: start: 20221012, end: 20221017

REACTIONS (4)
  - Post procedural haemorrhage [Recovered/Resolved]
  - Device expulsion [Recovered/Resolved]
  - Infection [None]
  - Procedural pain [None]

NARRATIVE: CASE EVENT DATE: 20221017
